FAERS Safety Report 6294685-5 (Version None)
Quarter: 2009Q3

REPORT INFORMATION
  Report Type: 
  Country: None (occurrence: None)
  Receive Date: 20090803
  Receipt Date: 20090727
  Transmission Date: 20100115
  Serious: Yes (Life-Threatening, Hospitalization, Disabling)
  Sender: FDA-Public Use
  Company Number: A0796399A

PATIENT
  Age: 35 Year
  Sex: Female

DRUGS (9)
  1. LAMICTAL [Suspect]
     Indication: BIPOLAR DISORDER
     Dosage: 200MG PER DAY
     Route: 048
     Dates: start: 20070101
  2. CYMBALTA [Concomitant]
  3. ADVAIR HFA [Concomitant]
  4. LEVOTHYROXINE SODIUM [Concomitant]
  5. SERTRALINE [Concomitant]
  6. LITHIUM [Concomitant]
  7. TRAZODONE HCL [Concomitant]
  8. RISPERDAL [Concomitant]
  9. LORAZEPAM [Concomitant]

REACTIONS (5)
  - DYSPNOEA [None]
  - LYMPHADENOPATHY [None]
  - RASH [None]
  - SWELLING FACE [None]
  - URTICARIA [None]
